FAERS Safety Report 9047614 (Version 1)
Quarter: 2013Q1

REPORT INFORMATION
  Report Type: Spontaneous
  Country: US (occurrence: US)
  Receive Date: 20130204
  Receipt Date: 20130204
  Transmission Date: 20140127
  Serious: No
  Sender: FDA-Public Use
  Company Number: US-AMGEN-USASP2013005350

PATIENT
  Age: 39 Year
  Sex: Female

DRUGS (5)
  1. ENBREL [Suspect]
     Indication: BEHCET^S SYNDROME
     Dosage: 50 MG, QWK
     Dates: start: 20120118
  2. ENBREL [Suspect]
     Indication: FIBROMYALGIA
  3. ENBREL [Suspect]
     Indication: FATIGUE
  4. ENBREL [Suspect]
     Indication: ARTHRITIS
  5. IMURAN                             /00001501/ [Concomitant]
     Dosage: 75 MG, QD
     Route: 048

REACTIONS (6)
  - Behcet^s syndrome [Not Recovered/Not Resolved]
  - Nasopharyngitis [Not Recovered/Not Resolved]
  - Bronchitis [Not Recovered/Not Resolved]
  - Ear infection [Not Recovered/Not Resolved]
  - Seasonal allergy [Not Recovered/Not Resolved]
  - Infected skin ulcer [Not Recovered/Not Resolved]
